FAERS Safety Report 7098626-2 (Version None)
Quarter: 2010Q4

REPORT INFORMATION
  Report Type: 
  Country: None (occurrence: None)
  Receive Date: 20101112
  Receipt Date: 20101104
  Transmission Date: 20110411
  Serious: Yes (Other)
  Sender: FDA-Public Use
  Company Number: CA-PFIZER INC-2010140745

PATIENT
  Age: 55 Year
  Sex: Male

DRUGS (3)
  1. DETROL LA [Suspect]
     Dosage: 4MG
  2. SOTALOL [Interacting]
     Dosage: UNK
  3. NEXIUM [Concomitant]
     Dosage: UNK

REACTIONS (3)
  - CARDIAC DISORDER [None]
  - DRUG INTERACTION [None]
  - PALPITATIONS [None]
